FAERS Safety Report 8469552 (Version 2)
Quarter: 2013Q1

REPORT INFORMATION
  Report Type: Spontaneous
  Country: CA (occurrence: CA)
  Receive Date: 20120321
  Receipt Date: 20130227
  Transmission Date: 20140127
  Serious: Yes (Other)
  Sender: FDA-Public Use
  Company Number: CA-JNJFOC-20120307343

PATIENT
  Sex: Male
  Weight: 99.79 kg

DRUGS (5)
  1. REMICADE [Suspect]
     Indication: COLITIS ULCERATIVE
     Route: 042
     Dates: start: 20071101
  2. REMICADE [Suspect]
     Indication: COLITIS ULCERATIVE
     Route: 042
     Dates: start: 201201
  3. IMURAN [Concomitant]
     Route: 048
  4. BETNASOL [Concomitant]
     Route: 065
  5. ASACOL [Concomitant]
     Route: 065

REACTIONS (2)
  - Lupus-like syndrome [Recovering/Resolving]
  - Drug specific antibody present [Unknown]
